FAERS Safety Report 23552828 (Version 3)
Quarter: 2025Q3

REPORT INFORMATION
  Report Type: Spontaneous
  Country: EU (occurrence: EU)
  Receive Date: 20240222
  Receipt Date: 20250925
  Transmission Date: 20251021
  Serious: Yes (Life-Threatening, Hospitalization, Other)
  Sender: SANDOZ
  Company Number: EU-EMA-DD-20180207-negievprod-085644

PATIENT
  Age: 79 Year
  Sex: Male

DRUGS (7)
  1. CYCLOPHOSPHAMIDE [Suspect]
     Active Substance: CYCLOPHOSPHAMIDE
     Indication: Glomerulonephritis proliferative
     Dosage: 100 MG, QD
     Route: 048
     Dates: start: 2011, end: 20110517
  2. MYCOPHENOLATE SODIUM [Suspect]
     Active Substance: MYCOPHENOLATE SODIUM
     Indication: Product used for unknown indication
     Dosage: 360 MG, BID
     Route: 065
     Dates: start: 201105, end: 201106
  3. METHYLPREDNISOLONE [Suspect]
     Active Substance: METHYLPREDNISOLONE
     Indication: Glomerulonephritis proliferative
     Route: 065
     Dates: start: 20110330
  4. METHYLPREDNISOLONE [Suspect]
     Active Substance: METHYLPREDNISOLONE
     Route: 065
  5. PREDNISONE [Suspect]
     Active Substance: PREDNISONE
     Indication: Glomerulonephritis proliferative
     Dosage: GRADUAL DOSE REDUCTION
     Route: 065
     Dates: start: 2011
  6. PREDNISONE [Suspect]
     Active Substance: PREDNISONE
     Dosage: 70 MG, QD
     Route: 065
     Dates: start: 20110311
  7. PREDNISONE [Suspect]
     Active Substance: PREDNISONE
     Route: 065
     Dates: start: 201106

REACTIONS (3)
  - Type 2 lepra reaction [Unknown]
  - Pancytopenia [Unknown]
  - Pneumonia [Unknown]

NARRATIVE: CASE EVENT DATE: 20110501
